FAERS Safety Report 19153246 (Version 1)
Quarter: 2021Q2

REPORT INFORMATION
  Report Type: Report from Study
  Country: ES (occurrence: ES)
  Receive Date: 20210419
  Receipt Date: 20210419
  Transmission Date: 20210717
  Serious: Yes (Hospitalization, Other)
  Sender: FDA-Public Use
  Company Number: ES-JNJFOC-20210412404

PATIENT
  Age: 54 Year
  Sex: Female

DRUGS (2)
  1. SPRAVATO [Suspect]
     Active Substance: ESKETAMINE
     Dosage: 6 DOSES
  2. SPRAVATO [Suspect]
     Active Substance: ESKETAMINE
     Indication: DEPRESSION
     Dosage: 2 DOSES

REACTIONS (7)
  - Somnolence [Unknown]
  - Vertigo [Unknown]
  - Sedation [Unknown]
  - Suicidal ideation [Recovered/Resolved]
  - Depression [Recovered/Resolved]
  - Dizziness [Unknown]
  - Dysgeusia [Unknown]
